FAERS Safety Report 14995538 (Version 1)
Quarter: 2018Q2

REPORT INFORMATION
  Report Type: Spontaneous
  Country: DE (occurrence: DE)
  Receive Date: 20180611
  Receipt Date: 20180611
  Transmission Date: 20180711
  Serious: Yes (Hospitalization)
  Sender: FDA-Public Use
  Company Number: DE-TEVA-2018-DE-904552

PATIENT
  Age: 87 Year
  Sex: Male

DRUGS (11)
  1. ATROVENT [Concomitant]
     Active Substance: IPRATROPIUM BROMIDE
     Dosage: 250 ?/2ML, NK
  2. AZOPT [Concomitant]
     Active Substance: BRINZOLAMIDE
     Dosage: NK MG, 1-0-1-0
  3. FINASTERID [Concomitant]
     Active Substance: FINASTERIDE
     Dosage: 1-0-0-0
  4. RAMIPRIL. [Suspect]
     Active Substance: RAMIPRIL
     Dosage: 0-0-1-0
     Route: 065
  5. MEMANTINE. [Suspect]
     Active Substance: MEMANTINE
     Dosage: 1-0-0-0
     Route: 065
  6. SALBUTAMOL [Concomitant]
     Active Substance: ALBUTEROL
     Dosage: 1.25 MG/2.5ML, NK
  7. THEOPHYLLIN [Concomitant]
     Active Substance: THEOPHYLLINE ANHYDROUS
     Dosage: 1-0-0-0
  8. COMBIGAN [Concomitant]
     Active Substance: BRIMONIDINE TARTRATE\TIMOLOL MALEATE
     Dosage: NK MG, 1-0-0-0
  9. TORASEMIDE [Suspect]
     Active Substance: TORSEMIDE
     Dosage: 1-0-0-0
     Route: 065
  10. TAMSULOSIN [Concomitant]
     Active Substance: TAMSULOSIN
     Dosage: , 0-0-1-0
  11. MOVICOL [Concomitant]
     Active Substance: POLYETHYLENE GLYCOL 3350\POTASSIUM CHLORIDE\SODIUM BICARBONATE\SODIUM CHLORIDE
     Dosage: NK MG, BEDARF

REACTIONS (6)
  - Asthenia [Unknown]
  - Pallor [Unknown]
  - Wound [Unknown]
  - General physical health deterioration [Unknown]
  - Fall [Unknown]
  - Syncope [Unknown]
